FAERS Safety Report 4596716-7 (Version None)
Quarter: 2005Q1

REPORT INFORMATION
  Report Type: 
  Country: None (occurrence: None)
  Receive Date: 20050302
  Receipt Date: 20041222
  Transmission Date: 20050727
  Serious: Yes (Hospitalization)
  Sender: FDA-Public Use
  Company Number: JP-GLAXOSMITHKLINE-B0362931A

PATIENT
  Age: 79 Year
  Sex: Male
  Weight: 52 kg

DRUGS (12)
  1. VALTREX [Suspect]
     Indication: HERPES ZOSTER
     Dosage: 1000MG PER DAY
     Route: 048
     Dates: start: 20041213, end: 20041213
  2. ALLOID G [Concomitant]
     Dosage: 80ML PER DAY
     Route: 048
  3. ERYTHROCIN [Concomitant]
     Dosage: 600MG PER DAY
     Route: 048
  4. MUCOSTA [Concomitant]
     Dosage: 300MG PER DAY
     Route: 048
  5. TOUGHMAC E [Concomitant]
     Dosage: 3CAP PER DAY
     Route: 048
  6. MUCOSOLVAN [Concomitant]
     Dosage: 45MG PER DAY
     Route: 048
  7. AMIYU [Concomitant]
     Dosage: 2.49G PER DAY
     Route: 048
  8. THEO-DUR [Concomitant]
     Dosage: 200MG PER DAY
     Route: 048
  9. NORVASC [Concomitant]
     Dosage: 5MG PER DAY
     Route: 048
     Dates: start: 20000101
  10. PREDONINE [Concomitant]
     Dosage: 5MG PER DAY
     Route: 048
  11. ZANTAC [Concomitant]
     Dosage: 150MG PER DAY
     Route: 048
  12. CARDENALIN [Concomitant]
     Dosage: 2MG PER DAY
     Route: 048
     Dates: start: 20030801

REACTIONS (10)
  - ABNORMAL BEHAVIOUR [None]
  - C-REACTIVE PROTEIN INCREASED [None]
  - DISORIENTATION [None]
  - LOGORRHOEA [None]
  - NAUSEA [None]
  - PLATELET COUNT DECREASED [None]
  - PSYCHIATRIC SYMPTOM [None]
  - PYREXIA [None]
  - RESTLESSNESS [None]
  - VOMITING [None]
